FAERS Safety Report 9349994 (Version 1)
Quarter: 2013Q2

REPORT INFORMATION
  Report Type: Spontaneous
  Country: NL (occurrence: NL)
  Receive Date: 20130614
  Receipt Date: 20130614
  Transmission Date: 20140414
  Serious: Yes (Death)
  Sender: FDA-Public Use
  Company Number: PHHY2013NL060489

PATIENT
  Age: 71 Year
  Sex: Female

DRUGS (8)
  1. RASILEZ [Suspect]
     Dosage: 150 UKN, UNK
  2. METFORMINE [Concomitant]
     Dosage: 1000 BID
  3. BISACODYL [Concomitant]
     Dosage: 5 MG, QD
  4. PENIDURAL [Concomitant]
     Dosage: UNK UKN, EVERY 6 WEEKS
  5. VESICARE [Concomitant]
     Dosage: 10 MG, UNK
  6. BACLOFEN [Concomitant]
  7. HYDROCHLOROTHIAZIDE [Concomitant]
     Dosage: 12.5
  8. TIZANIDINE [Concomitant]
     Dosage: 2 MG, QD

REACTIONS (1)
  - Cardiac arrest [Fatal]
